FAERS Safety Report 25494695 (Version 1)
Quarter: 2025Q2

REPORT INFORMATION
  Report Type: Spontaneous
  Country: US (occurrence: US)
  Receive Date: 20250630
  Receipt Date: 20250630
  Transmission Date: 20250716
  Serious: No
  Sender: CB FLEET
  Company Number: US-PRESTIGE-202411-US-003833

PATIENT
  Age: 7 Year
  Sex: Male

DRUGS (1)
  1. NIX COMPLETE MAXIMUM STRENGTH LICE ELIMINATION [Suspect]
     Active Substance: PERMETHRIN
     Indication: Lice infestation
     Route: 061

REACTIONS (3)
  - Erythema [Not Recovered/Not Resolved]
  - Swelling face [Not Recovered/Not Resolved]
  - Dark circles under eyes [Not Recovered/Not Resolved]
